FAERS Safety Report 6133759-6 (Version None)
Quarter: 2009Q1

REPORT INFORMATION
  Report Type: 
  Country: None (occurrence: None)
  Receive Date: 20090326
  Receipt Date: 20090317
  Transmission Date: 20090719
  Serious: Yes (Other)
  Sender: FDA-Public Use
  Company Number: US-PFIZER INC-2007093570

PATIENT
  Sex: Female
  Weight: 63 kg

DRUGS (10)
  1. PROVERA [Suspect]
     Indication: MENSTRUATION IRREGULAR
     Dosage: UNK
     Route: 048
     Dates: start: 19700101, end: 19961001
  2. PROVERA [Suspect]
     Indication: MENOPAUSE
  3. MEDROXYPROGESTERONE AND MEDROXYPROGESTERONE ACETATE [Suspect]
     Indication: HORMONE REPLACEMENT THERAPY
     Route: 048
     Dates: start: 19760101, end: 19961101
  4. PREMARIN [Suspect]
     Indication: MENSTRUATION IRREGULAR
     Dosage: UNK
     Dates: start: 19700101, end: 19961001
  5. PREMARIN [Suspect]
     Indication: MENOPAUSE
  6. CYCRIN [Suspect]
     Indication: MENSTRUATION IRREGULAR
     Dosage: UNK
     Dates: start: 19940101, end: 19950101
  7. CYCRIN [Suspect]
     Indication: MENOPAUSE
  8. CATAPRES [Concomitant]
     Indication: HYPERTENSION
     Dosage: UNK
     Dates: start: 19840101
  9. HYGROTON [Concomitant]
     Indication: HYPERTENSION
     Dosage: UNK
     Dates: start: 19800101
  10. KLOTRIX [Concomitant]
     Indication: HYPERTENSION
     Dosage: UNK
     Dates: start: 19800101

REACTIONS (1)
  - BREAST CANCER FEMALE [None]
